FAERS Safety Report 4672826-0 (Version None)
Quarter: 2005Q2

REPORT INFORMATION
  Report Type: 
  Country: None (occurrence: None)
  Receive Date: 20050523
  Receipt Date: 20050513
  Transmission Date: 20051028
  Serious: Yes (Death, Hospitalization)
  Sender: FDA-Public Use
  Company Number: 200511538GDS

PATIENT
  Age: 72 Year
  Sex: Male

DRUGS (7)
  1. ADIRO (ACETYLSALICYLIC ACID) [Suspect]
     Indication: ACUTE MYOCARDIAL INFARCTION
     Dosage: 100 MG, QD, ORAL
     Route: 048
     Dates: start: 20040407, end: 20040426
  2. METALYSE (TENECTEPLASE) [Suspect]
     Dosage: 8 KIU, OTAL DAILY
  3. ENOXAPARIN SODIUM [Suspect]
     Indication: ACUTE MYOCARDIAL INFARCTION
     Dosage: 140 MG, TOTAL DAILY, SUBCUTANEOUS
     Route: 058
     Dates: start: 20040407, end: 20040426
  4. UNIKET [Concomitant]
  5. TENORMIN [Concomitant]
  6. PREVENCOR [Concomitant]
  7. PROSCAR [Concomitant]

REACTIONS (3)
  - CEREBRAL HAEMORRHAGE [None]
  - LUNG NEOPLASM MALIGNANT [None]
  - METASTASIS [None]
